FAERS Safety Report 15233012 (Version 3)
Quarter: 2018Q3

REPORT INFORMATION
  Report Type: Spontaneous
  Country: US (occurrence: US)
  Receive Date: 20180802
  Receipt Date: 20180906
  Transmission Date: 20181010
  Serious: Yes (Disabling, Other)
  Sender: FDA-Public Use
  Company Number: US-ENDO PHARMACEUTICALS INC-2018-040414

PATIENT
  Age: 66 Year
  Sex: Male
  Weight: 72.56 kg

DRUGS (3)
  1. XIAFLEX [Suspect]
     Active Substance: COLLAGENASE CLOSTRIDIUM HISTOLYTICUM
     Indication: DUPUYTREN^S CONTRACTURE
     Dosage: UNK UNKNOWN, UNKNOWN (1ST INJECTION)
     Route: 065
  2. XIAFLEX [Suspect]
     Active Substance: COLLAGENASE CLOSTRIDIUM HISTOLYTICUM
     Dosage: UNK UNKNOWN, UNKNOWN (3RD INJECTION)
     Route: 065
     Dates: start: 20171023, end: 20171023
  3. XIAFLEX [Suspect]
     Active Substance: COLLAGENASE CLOSTRIDIUM HISTOLYTICUM
     Dosage: UNK UNKNOWN, UNKNOWN (2ND INJECTION)
     Route: 065

REACTIONS (21)
  - Brain injury [Unknown]
  - Chondropathy [Unknown]
  - Product administered at inappropriate site [Unknown]
  - Post-traumatic stress disorder [Unknown]
  - Blood pressure decreased [Unknown]
  - Feeling abnormal [Unknown]
  - Hyperhidrosis [Unknown]
  - Memory impairment [Unknown]
  - Personal relationship issue [Unknown]
  - Heart injury [Unknown]
  - Dysgeusia [Unknown]
  - Urinary incontinence [Unknown]
  - Headache [Unknown]
  - Drug ineffective [Unknown]
  - Temporomandibular joint syndrome [Unknown]
  - Heart rate increased [Unknown]
  - Eye movement disorder [Unknown]
  - Loss of consciousness [Unknown]
  - Spondylitis [Unknown]
  - Depression [Unknown]
  - Dyspnoea [Unknown]

NARRATIVE: CASE EVENT DATE: 201710
